FAERS Safety Report 21339179 (Version 1)
Quarter: 2022Q3

REPORT INFORMATION
  Report Type: Spontaneous
  Country: US (occurrence: US)
  Receive Date: 20220915
  Receipt Date: 20220915
  Transmission Date: 20221027
  Serious: No
  Sender: FDA-Public Use
  Company Number: US-009507513-2208USA010154

PATIENT
  Age: 67 Year
  Sex: Male

DRUGS (2)
  1. TRUSOPT [Suspect]
     Active Substance: DORZOLAMIDE HYDROCHLORIDE
     Indication: Intraocular pressure test
     Dosage: 3 DROPS ONCE A DAY TO BOTH EYES
     Route: 047
  2. DORZOLAMIDE HYDROCHLORIDE [Suspect]
     Active Substance: DORZOLAMIDE HYDROCHLORIDE
     Indication: Intraocular pressure test
     Dosage: 3 DROPS ONCE A DAY TO BOTH EYES
     Route: 047

REACTIONS (3)
  - Therapeutic response changed [Unknown]
  - Product use issue [Unknown]
  - Product availability issue [Unknown]
